FAERS Safety Report 9990285 (Version 1)
Quarter: 2014Q1

REPORT INFORMATION
  Report Type: Spontaneous
  Country: US (occurrence: None)
  Receive Date: 20140123
  Receipt Date: 20140123
  Transmission Date: 20141002
  Serious: Yes (Hospitalization)
  Sender: FDA-Public Use
  Company Number: UTC-034746

PATIENT
  Age: 36 Year
  Sex: Female
  Weight: 58.18 kg

DRUGS (2)
  1. REMODULIN [Suspect]
     Indication: PULMONARY ARTERIAL HYPERTENSION
     Dosage: (0.101 UG/KG, 1 IN 1 MIN)
     Route: 041
     Dates: start: 20100315
  2. ADCIRCA (TADALAFIL) [Concomitant]

REACTIONS (1)
  - Haemoptysis [None]
